FAERS Safety Report 5748561-4 (Version None)
Quarter: 2008Q2

REPORT INFORMATION
  Report Type: 
  Country: None (occurrence: None)
  Receive Date: 20080523
  Receipt Date: 20080514
  Transmission Date: 20081010
  Serious: Yes (Disabling)
  Sender: FDA-Public Use
  Company Number: FR-PFIZER INC-2008042481

PATIENT
  Sex: Female

DRUGS (12)
  1. FARMORUBICIN [Suspect]
     Indication: BREAST CANCER
     Route: 042
     Dates: start: 20061002, end: 20070123
  2. SOLU-MEDROL [Suspect]
     Indication: PREMEDICATION
     Dosage: FREQ:ADMINISTERED AT EVERY CYCLE
  3. NEULASTA [Suspect]
     Indication: PROPHYLAXIS
     Dosage: DAILY DOSE:6MG-FREQ:ADMINISTERED AT EVERY CYCLE
     Route: 058
  4. ENDOXAN [Suspect]
     Indication: BREAST CANCER
     Route: 042
     Dates: start: 20061002, end: 20070123
  5. POLARAMINE [Suspect]
     Indication: PREMEDICATION
     Dosage: FREQ:ADMINISTERED AT EVERY CYCLE
  6. TAMOXIFEN CITRATE [Suspect]
     Indication: HORMONE THERAPY
     Route: 048
  7. TAXOTERE [Suspect]
     Indication: BREAST CANCER
     Dosage: DAILY DOSE:125MG
     Route: 042
     Dates: start: 20061002, end: 20070123
  8. CARDIOXANE [Suspect]
     Indication: BREAST CANCER
     Dosage: DAILY DOSE:850MG
     Route: 042
     Dates: start: 20061002, end: 20070123
  9. ZOPHREN [Suspect]
     Indication: PREMEDICATION
     Dosage: FREQ:AT EACH CURE
  10. PRIMPERAN TAB [Suspect]
     Indication: PREMEDICATION
     Dosage: FREQ:ADMINISTERED AT EVERY CYCLE
  11. OSMOTAN [Suspect]
     Indication: PREMEDICATION
     Dosage: FREQ:AT EACH CURE
  12. TRASTUZUMAB [Suspect]
     Indication: BREAST CANCER
     Dosage: DAILY DOSE:340GRAM
     Route: 042
     Dates: start: 20070515, end: 20071030

REACTIONS (1)
  - HYPOTHYROIDISM [None]
